FAERS Safety Report 6705420-8 (Version None)
Quarter: 2010Q2

REPORT INFORMATION
  Report Type: 
  Country: None (occurrence: None)
  Receive Date: 20100503
  Receipt Date: 20100422
  Transmission Date: 20101027
  Serious: No
  Sender: FDA-Public Use
  Company Number: US-BIOGENIDEC-2010BI006529

PATIENT
  Age: 39 Year
  Sex: Female

DRUGS (2)
  1. TYSABRI [Suspect]
     Indication: MULTIPLE SCLEROSIS
     Route: 042
     Dates: start: 20091008, end: 20100309
  2. TYSABRI [Suspect]
     Route: 042
     Dates: start: 20071113, end: 20071201

REACTIONS (2)
  - ANXIETY [None]
  - INFUSION RELATED REACTION [None]
